FAERS Safety Report 17963479 (Version 1)
Quarter: 2020Q2

REPORT INFORMATION
  Report Type: Spontaneous
  Country: US (occurrence: US)
  Receive Date: 20200630
  Receipt Date: 20200630
  Transmission Date: 20200714
  Serious: No
  Sender: FDA-Public Use
  Company Number: None

PATIENT
  Age: 49 Year
  Weight: 55.34 kg

DRUGS (9)
  1. DEXCOM G6 SENSOR [Suspect]
     Active Substance: DEVICE
  2. ADVAIR HFA [Concomitant]
     Active Substance: FLUTICASONE PROPIONATE\SALMETEROL XINAFOATE
  3. HUMALOG [Concomitant]
     Active Substance: INSULIN LISPRO
  4. BUPROPION. [Concomitant]
     Active Substance: BUPROPION
  5. T-SLIM INSULIN PUMP [Concomitant]
  6. IBUPROFEN. [Concomitant]
     Active Substance: IBUPROFEN
  7. FLUTICASONE. [Suspect]
     Active Substance: FLUTICASONE
  8. JARDIANCE [Concomitant]
     Active Substance: EMPAGLIFLOZIN
  9. ATORVASTATIN [Concomitant]
     Active Substance: ATORVASTATIN

REACTIONS (5)
  - Rash erythematous [None]
  - Pruritus [None]
  - Rash [None]
  - Injection site erythema [None]
  - Injection site rash [None]

NARRATIVE: CASE EVENT DATE: 20200630
